FAERS Safety Report 17144344 (Version 1)
Quarter: 2019Q4

REPORT INFORMATION
  Report Type: Spontaneous
  Country: US (occurrence: US)
  Receive Date: 20191212
  Receipt Date: 20191212
  Transmission Date: 20200122
  Serious: Yes (Hospitalization, Other)
  Sender: FDA-Public Use
  Company Number: US-ASTRAZENECA-2019SF76535

PATIENT
  Age: 62 Year
  Sex: Male

DRUGS (4)
  1. INSULIN IN EXTERNAL PUMP [Concomitant]
     Indication: TYPE 1 DIABETES MELLITUS
  2. ROSUVASTATIN CALCIUM. [Suspect]
     Active Substance: ROSUVASTATIN CALCIUM
     Indication: BLOOD CHOLESTEROL ABNORMAL
     Route: 048
  3. SYMBICORT [Suspect]
     Active Substance: BUDESONIDE\FORMOTEROL FUMARATE DIHYDRATE
     Indication: CHRONIC OBSTRUCTIVE PULMONARY DISEASE
     Dosage: 160/45 UG, 2 PUFFS TWO TIMES PER DAY
     Route: 055
     Dates: start: 2013
  4. SYMBICORT [Suspect]
     Active Substance: BUDESONIDE\FORMOTEROL FUMARATE DIHYDRATE
     Indication: ASTHMA
     Dosage: 160/45 UG, 2 PUFFS TWO TIMES PER DAY
     Route: 055
     Dates: start: 2013

REACTIONS (13)
  - Asthma [Unknown]
  - Product dose omission [Unknown]
  - Heart rate decreased [Unknown]
  - Intentional product misuse [Unknown]
  - Angina pectoris [Unknown]
  - Coronary artery occlusion [Unknown]
  - Type 1 diabetes mellitus [Unknown]
  - Dyspnoea [Not Recovered/Not Resolved]
  - Carotid artery disease [Unknown]
  - Coeliac disease [Unknown]
  - Blood pressure decreased [Unknown]
  - Chronic obstructive pulmonary disease [Unknown]
  - Drug delivery system malfunction [Unknown]

NARRATIVE: CASE EVENT DATE: 2011
